FAERS Safety Report 14362234 (Version 1)
Quarter: 2018Q1

REPORT INFORMATION
  Report Type: Spontaneous
  Country: US (occurrence: US)
  Receive Date: 20180108
  Receipt Date: 20180108
  Transmission Date: 20180509
  Serious: No
  Sender: FDA-Public Use
  Company Number: US-TEVA-2017-US-839809

PATIENT
  Sex: Male

DRUGS (1)
  1. AMOXICILLIN W/CLAVULANIC ACID [Suspect]
     Active Substance: AMOXICILLIN\CLAVULANIC ACID
     Indication: SINUSITIS
     Dosage: AMOXICILLIN W/CLAVULANIC ACID : 875/125 MG
     Dates: start: 20171214, end: 20171217

REACTIONS (3)
  - Diarrhoea [Recovered/Resolved]
  - Ill-defined disorder [Unknown]
  - Abdominal discomfort [Unknown]
